FAERS Safety Report 7750613-4 (Version None)
Quarter: 2011Q3

REPORT INFORMATION
  Report Type: 
  Country: None (occurrence: None)
  Receive Date: 20110912
  Receipt Date: 20110827
  Transmission Date: 20111222
  Serious: Yes (Hospitalization)
  Sender: FDA-Public Use
  Company Number: 2011NA000072

PATIENT
  Age: 57 Year
  Sex: Male

DRUGS (6)
  1. PREDNISOLONE [Suspect]
     Indication: RHEUMATOID ARTHRITIS
     Dosage: 7.5 MG;QD;
  2. DICLOFENAC SODIUM [Suspect]
     Indication: RHEUMATOID ARTHRITIS
     Dosage: 75 MG;QD;
  3. INFLIXIMAB (INFLIXIMAB) [Suspect]
     Indication: RHEUMATOID ARTHRITIS
     Dosage: 3 MG/KG;AT 0, 2 AND 6 WEEKS; 3 MG/KG;EVERY OTHER 8 WEEKS;
  4. SULFASALAZINE [Concomitant]
  5. METHOTREXATE [Suspect]
     Indication: RHEUMATOID ARTHRITIS
     Dosage: 10 MG;QW;
  6. METHOTREXATE [Concomitant]

REACTIONS (5)
  - LYMPHADENOPATHY [None]
  - BRUCELLOSIS [None]
  - SPLENOMEGALY [None]
  - POLLAKIURIA [None]
  - HAEMOGLOBIN DECREASED [None]
